FAERS Safety Report 19081608 (Version 4)
Quarter: 2021Q2

REPORT INFORMATION
  Report Type: Other
  Country: DE (occurrence: DE)
  Receive Date: 20210401
  Receipt Date: 20210505
  Transmission Date: 20210717
  Serious: Yes (Other)
  Sender: FDA-Public Use
  Company Number: DE-ROCHE-2697098

PATIENT
  Age: 51 Year
  Sex: Male
  Weight: 48 kg

DRUGS (3)
  1. NOVALGIN (METAMIZOLE SODIUM) [Concomitant]
     Active Substance: METAMIZOLE SODIUM
     Indication: PAIN
     Dosage: DROPS
     Dates: start: 20150501
  2. RISDIPLAM. [Suspect]
     Active Substance: RISDIPLAM
     Indication: SPINAL MUSCULAR ATROPHY
     Dosage: 6.6 ML WITH 5 MG
     Route: 065
     Dates: start: 20200924, end: 20210125
  3. MARCUMAR [Concomitant]
     Active Substance: PHENPROCOUMON
     Indication: DEEP VEIN THROMBOSIS
     Dosage: 0.5 DF = HALF A TABLET
     Route: 065
     Dates: start: 2014

REACTIONS (8)
  - Abdominal pain [Recovered/Resolved]
  - Large intestine perforation [Recovered/Resolved]
  - Constipation [Recovered/Resolved]
  - Pyrexia [Recovered/Resolved]
  - Diverticulitis [Recovered/Resolved]
  - Diverticulitis [Unknown]
  - Inflammatory marker increased [Unknown]
  - Diarrhoea [Recovered/Resolved]

NARRATIVE: CASE EVENT DATE: 20201009
